FAERS Safety Report 17806475 (Version 1)
Quarter: 2020Q2

REPORT INFORMATION
  Report Type: Report from Study
  Country: IE (occurrence: IE)
  Receive Date: 20200520
  Receipt Date: 20200520
  Transmission Date: 20200714
  Serious: Yes (Hospitalization)
  Sender: FDA-Public Use
  Company Number: IE-TEVA-2020-IE-1234703

PATIENT
  Age: 69 Year
  Sex: Female

DRUGS (9)
  1. AJOVY [Suspect]
     Active Substance: FREMANEZUMAB-VFRM
     Indication: MIGRAINE
     Route: 058
     Dates: start: 20200213
  2. ESOMEPRAZOLE. [Concomitant]
     Active Substance: ESOMEPRAZOLE MAGNESIUM
  3. NEBILET [Concomitant]
     Active Substance: NEBIVOLOL
  4. ELTROXIN 100 [Concomitant]
  5. ROSUVASTATIN 10 [Concomitant]
     Active Substance: ROSUVASTATIN
  6. CO D3 TAB [Concomitant]
  7. AMITRIPTYLINE 25 [Concomitant]
  8. ZIMOVANE 7.5 [Concomitant]
  9. LYRICA [Concomitant]
     Active Substance: PREGABALIN

REACTIONS (2)
  - Colitis [Recovered/Resolved]
  - Diarrhoea [Recovered/Resolved]

NARRATIVE: CASE EVENT DATE: 20200218
